FAERS Safety Report 15439842 (Version 1)
Quarter: 2018Q3

REPORT INFORMATION
  Report Type: Spontaneous
  Country: ES (occurrence: ES)
  Receive Date: 20180928
  Receipt Date: 20180928
  Transmission Date: 20181010
  Serious: Yes (Hospitalization)
  Sender: FDA-Public Use
  Company Number: ES-TEVA-2018-ES-959217

PATIENT
  Age: 89 Year
  Sex: Female

DRUGS (2)
  1. RIVASTIGMINA [Suspect]
     Active Substance: RIVASTIGMINE TARTRATE
     Indication: DEMENTIA
     Dosage: 9.5 MILLIGRAM DAILY;
     Route: 065
     Dates: start: 201807, end: 20180905
  2. DONEPEZILO [Suspect]
     Active Substance: DONEPEZIL
     Indication: DEMENTIA
     Dosage: 10 MILLIGRAM DAILY;
     Route: 048
     Dates: start: 201407

REACTIONS (3)
  - Tachycardia [Unknown]
  - Gastric ulcer [Unknown]
  - Rectal haemorrhage [Unknown]

NARRATIVE: CASE EVENT DATE: 20180831
